FAERS Safety Report 5373940-7 (Version None)
Quarter: 2007Q2

REPORT INFORMATION
  Report Type: 
  Country: None (occurrence: None)
  Receive Date: 20070628
  Receipt Date: 20070620
  Transmission Date: 20071010
  Serious: Yes (Hospitalization)
  Sender: FDA-Public Use
  Company Number: GB-ELI_LILLY_AND_COMPANY-GB200705003054

PATIENT
  Age: 46 Year
  Sex: Female
  Weight: 140 kg

DRUGS (10)
  1. CYMBALTA [Suspect]
     Indication: DEPRESSION
     Dosage: 60 MG, 2/D
     Route: 048
     Dates: start: 20060101, end: 20070521
  2. DESMOPRESSIN [Concomitant]
     Indication: ENURESIS
     Dosage: 600 UG, UNK
     Route: 048
     Dates: start: 20061123, end: 20070426
  3. ARIPIPRAZOLE [Concomitant]
     Indication: PSYCHOTIC DISORDER
     Dosage: 5 MG, UNK
     Dates: start: 20070201, end: 20070401
  4. DICLOFENAC [Concomitant]
     Dosage: 150 MG, UNK
     Route: 048
     Dates: start: 20060101, end: 20070426
  5. HYOSCINE HBR HYT [Concomitant]
     Indication: SALIVARY HYPERSECRETION
     Dosage: 1 MG, UNK
     Route: 061
     Dates: start: 20040103
  6. CLOZAPINE [Concomitant]
     Dosage: 375 MG, UNK
     Route: 048
     Dates: start: 20061107
  7. CLOZAPINE [Concomitant]
     Dosage: 300 MG, DAILY (1/D)
     Route: 048
  8. SALBUTAMOL [Concomitant]
     Indication: ASTHMA
     Dosage: 400 UG, UNK
  9. SALMETEROL [Concomitant]
     Indication: ASTHMA
     Dosage: 100 UG, UNK
  10. BECLOMETHASONE DIPROPIONATE [Concomitant]
     Indication: ASTHMA
     Dosage: 200 UG, UNK

REACTIONS (3)
  - OEDEMA PERIPHERAL [None]
  - PULMONARY OEDEMA [None]
  - WEIGHT INCREASED [None]
